FAERS Safety Report 9324613 (Version 3)
Quarter: 2014Q1

REPORT INFORMATION
  Report Type: Report from Study
  Country: US (occurrence: US)
  Receive Date: 20130603
  Receipt Date: 20140321
  Transmission Date: 20141002
  Serious: Yes (Death)
  Sender: FDA-Public Use
  Company Number: US-CELGENEUS-163-C4047-13054368

PATIENT
  Age: 59 Year
  Sex: Male
  Weight: 89.2 kg

DRUGS (11)
  1. CC-4047 [Suspect]
     Indication: AMYLOIDOSIS
     Dosage: 1 MILLIGRAM
     Route: 048
     Dates: start: 20130313, end: 20130523
  2. DEXAMETHASONE [Suspect]
     Indication: AMYLOIDOSIS
     Dosage: 20 MILLIGRAM
     Route: 048
     Dates: start: 20130313, end: 20130523
  3. BORTEZOMIB [Concomitant]
     Indication: PRODUCT USED FOR UNKNOWN INDICATION
     Dosage: 2.1 MILLIGRAM
     Route: 058
  4. ONDANSETRON [Concomitant]
     Indication: PRODUCT USED FOR UNKNOWN INDICATION
     Route: 048
  5. LASIX [Concomitant]
     Indication: PRODUCT USED FOR UNKNOWN INDICATION
     Dosage: 20 MILLIGRAM
     Route: 065
  6. AVDODART [Concomitant]
     Indication: PRODUCT USED FOR UNKNOWN INDICATION
     Dosage: .5 MILLIGRAM
     Route: 065
  7. AMITRIPTYLINE [Concomitant]
     Indication: PRODUCT USED FOR UNKNOWN INDICATION
     Dosage: 25 MILLIGRAM
     Route: 065
  8. ZOLPIDEM [Concomitant]
     Indication: PRODUCT USED FOR UNKNOWN INDICATION
     Dosage: 12.5 MILLIGRAM
     Route: 065
  9. ASPIRIN [Concomitant]
     Indication: PRODUCT USED FOR UNKNOWN INDICATION
     Dosage: 81 MILLIGRAM
     Route: 048
  10. MIDODRINE [Concomitant]
     Indication: PRODUCT USED FOR UNKNOWN INDICATION
     Route: 065
  11. VICODIN [Concomitant]
     Indication: PRODUCT USED FOR UNKNOWN INDICATION
     Dosage: 10/325MG
     Route: 065

REACTIONS (3)
  - Myocardial infarction [Fatal]
  - Pulmonary embolism [Fatal]
  - Arrhythmia [Fatal]
